FAERS Safety Report 20189185 (Version 1)
Quarter: 2021Q4

REPORT INFORMATION
  Report Type: Spontaneous
  Country: FR (occurrence: None)
  Receive Date: 20211215
  Receipt Date: 20211215
  Transmission Date: 20220303
  Serious: Yes (Other)
  Sender: FDA-Public Use
  Company Number: 2021A860752

PATIENT
  Age: 61 Year
  Sex: Male

DRUGS (1)
  1. TAGRISSO [Suspect]
     Active Substance: OSIMERTINIB
     Indication: Lung adenocarcinoma stage IV
     Route: 048
     Dates: start: 202007

REACTIONS (1)
  - Lung opacity [Not Recovered/Not Resolved]

NARRATIVE: CASE EVENT DATE: 20201101
